FAERS Safety Report 5482511-3 (Version None)
Quarter: 2007Q4

REPORT INFORMATION
  Report Type: 
  Country: None (occurrence: None)
  Receive Date: 20071011
  Receipt Date: 20070613
  Transmission Date: 20080405
  Serious: No
  Sender: FDA-Public Use
  Company Number: A0655889A

PATIENT
  Age: 56 Year
  Sex: Female

DRUGS (14)
  1. TYKERB [Suspect]
     Indication: BREAST CANCER
     Dosage: 5TAB PER DAY
     Route: 048
  2. BENADRYL [Concomitant]
  3. AMBIEN [Concomitant]
  4. PROTONIX [Concomitant]
  5. DILAUDID [Concomitant]
  6. ZOFRAN [Concomitant]
  7. KYTRIL [Concomitant]
  8. ATIVAN [Concomitant]
  9. POTASSIUM CHLORIDE [Concomitant]
  10. ANZEMET [Concomitant]
  11. DEXAMETHASONE 0.5MG TAB [Concomitant]
  12. DIFLUCAN [Concomitant]
  13. SENOKOT [Concomitant]
  14. DOCUSATE [Concomitant]

REACTIONS (3)
  - FALL [None]
  - HYPOAESTHESIA [None]
  - NAUSEA [None]
